FAERS Safety Report 25173064 (Version 3)
Quarter: 2025Q2

REPORT INFORMATION
  Report Type: Spontaneous
  Country: US (occurrence: US)
  Receive Date: 20250408
  Receipt Date: 20250618
  Transmission Date: 20250717
  Serious: No
  Sender: ROCHE
  Company Number: US-ROCHE-10000250021

PATIENT
  Age: 65 Year
  Sex: Female

DRUGS (1)
  1. RITUXAN [Suspect]
     Active Substance: RITUXIMAB
     Indication: Rheumatoid arthritis
     Route: 065
     Dates: start: 202101, end: 20220125

REACTIONS (8)
  - Lip exfoliation [Recovered/Resolved]
  - Abscess [Recovered/Resolved]
  - Oral disorder [Recovered/Resolved]
  - Dysgeusia [Not Recovered/Not Resolved]
  - Dental caries [Not Recovered/Not Resolved]
  - Urinary tract infection [Unknown]
  - Malaise [Not Recovered/Not Resolved]
  - Blood cholesterol increased [Unknown]

NARRATIVE: CASE EVENT DATE: 20220101
